FAERS Safety Report 4342565-4 (Version None)
Quarter: 2004Q2

REPORT INFORMATION
  Report Type: 
  Country: None (occurrence: None)
  Receive Date: 20040419
  Receipt Date: 20040419
  Transmission Date: 20050107
  Serious: Yes (Other)
  Sender: FDA-Public Use
  Company Number: None

PATIENT
  Age: 19 Year
  Sex: Female

DRUGS (1)
  1. LIDOCAINE 1% INJ [Suspect]
     Indication: ABSCESS
     Dosage: {1 ML SUBCUTANEOUS
     Route: 058

REACTIONS (4)
  - BLOOD PRESSURE INCREASED [None]
  - DIZZINESS [None]
  - INJECTION SITE ERYTHEMA [None]
  - TACHYCARDIA [None]
